FAERS Safety Report 5315686-7 (Version None)
Quarter: 2007Q2

REPORT INFORMATION
  Report Type: 
  Country: None (occurrence: None)
  Receive Date: 20070503
  Receipt Date: 20070420
  Transmission Date: 20071010
  Serious: Yes (Hospitalization)
  Sender: FDA-Public Use
  Company Number: US-MERCK-0705USA00031

PATIENT
  Age: 89 Year
  Sex: Female

DRUGS (2)
  1. COZAAR [Suspect]
     Indication: HYPERTENSION
     Route: 065
  2. INSULIN [Concomitant]
     Route: 065

REACTIONS (2)
  - CHOLELITHIASIS [None]
  - UROSEPSIS [None]
